FAERS Safety Report 15895692 (Version 5)
Quarter: 2019Q2

REPORT INFORMATION
  Report Type: Spontaneous
  Country: CA (occurrence: CA)
  Receive Date: 20190131
  Receipt Date: 20190501
  Transmission Date: 20190711
  Serious: Yes (Other)
  Sender: FDA-Public Use
  Company Number: CA-PFIZER INC-2018325699

PATIENT
  Age: 55 Year
  Sex: Female

DRUGS (7)
  1. XELJANZ [Suspect]
     Active Substance: TOFACITINIB CITRATE
     Indication: RHEUMATOID ARTHRITIS
     Dosage: 5 MG, 2X/DAY
     Route: 048
     Dates: start: 20161223, end: 201806
  2. LIPITOR [Concomitant]
     Active Substance: ATORVASTATIN CALCIUM
     Dosage: UNK
  3. LYRICA [Concomitant]
     Active Substance: PREGABALIN
     Dosage: UNK, 2X/DAY
  4. MELOXICAM. [Concomitant]
     Active Substance: MELOXICAM
     Dosage: UNK
  5. XELJANZ [Suspect]
     Active Substance: TOFACITINIB CITRATE
     Dosage: 5 MG 2X/DAY, EVERY SECOND DAY (5 MG AM, 5 MG PM)
     Route: 048
     Dates: start: 20190126
  6. METHOTREXATE. [Concomitant]
     Active Substance: METHOTREXATE
     Indication: RHEUMATOID ARTHRITIS
     Dosage: 10 MG, WEEKLY
     Route: 048
  7. XELJANZ [Suspect]
     Active Substance: TOFACITINIB CITRATE
     Dosage: 5 MG, 1X/DAY
     Route: 048
     Dates: start: 201806, end: 2018

REACTIONS (10)
  - Rheumatoid arthritis [Unknown]
  - Rheumatoid lung [Unknown]
  - Fall [Unknown]
  - Joint swelling [Unknown]
  - Joint injury [Unknown]
  - Liver function test abnormal [Unknown]
  - Lower respiratory tract infection [Not Recovered/Not Resolved]
  - Limb injury [Unknown]
  - Postoperative wound infection [Recovering/Resolving]
  - Condition aggravated [Unknown]
